FAERS Safety Report 14969517 (Version 1)
Quarter: 2018Q2

REPORT INFORMATION
  Report Type: Spontaneous
  Country: US (occurrence: US)
  Receive Date: 20180604
  Receipt Date: 20180604
  Transmission Date: 20180711
  Serious: No
  Sender: FDA-Public Use
  Company Number: US-HERITAGE PHARMACEUTICALS-2018HTG00052

PATIENT
  Sex: Female
  Weight: 81.63 kg

DRUGS (2)
  1. BUPROPION HYDROCHLORIDE. [Suspect]
     Active Substance: BUPROPION HYDROCHLORIDE
     Indication: DEPRESSION
  2. BUPROPION HYDROCHLORIDE. [Suspect]
     Active Substance: BUPROPION HYDROCHLORIDE
     Indication: AFFECTIVE DISORDER
     Dosage: 100 MG, 1X/DAY
     Route: 048
     Dates: start: 201801, end: 2018

REACTIONS (1)
  - Rash papular [Recovered/Resolved]

NARRATIVE: CASE EVENT DATE: 2018
